FAERS Safety Report 9548968 (Version 1)
Quarter: 2013Q2

REPORT INFORMATION
  Report Type: Spontaneous
  Country: US (occurrence: None)
  Receive Date: 20130607
  Receipt Date: 20130607
  Transmission Date: 20140414
  Serious: Yes (Life-Threatening)
  Sender: FDA-Public Use
  Company Number: FK201203540

PATIENT
  Age: 71 Year
  Sex: Female

DRUGS (1)
  1. PROTAMINE SULFATE [Suspect]
     Indication: ANTICOAGULANT THERAPY
     Dosage: FIRST DOSE
     Dates: start: 20121025

REACTIONS (1)
  - Drug ineffective [None]
